FAERS Safety Report 5890401-7 (Version None)
Quarter: 2008Q3

REPORT INFORMATION
  Report Type: 
  Country: None (occurrence: None)
  Receive Date: 20080918
  Receipt Date: 20080908
  Transmission Date: 20090109
  Serious: Yes (Other)
  Sender: FDA-Public Use
  Company Number: 2008BI023516

PATIENT
  Age: 1 Day
  Sex: Female

DRUGS (1)
  1. AVONEX [Suspect]
     Indication: MULTIPLE SCLEROSIS
     Dosage: 30 UG; QW; TRPL
     Route: 064
     Dates: start: 19990101, end: 20010101

REACTIONS (3)
  - HEARING IMPAIRED [None]
  - MATERNAL DRUGS AFFECTING FOETUS [None]
  - VISUAL IMPAIRMENT [None]
